FAERS Safety Report 5024190-5 (Version None)
Quarter: 2006Q2

REPORT INFORMATION
  Report Type: 
  Country: None (occurrence: None)
  Receive Date: 20060428
  Receipt Date: 20050318
  Transmission Date: 20061013
  Serious: Yes (Other)
  Sender: FDA-Public Use
  Company Number: 2005P1000193

PATIENT
  Age: 3 Year
  Sex: 0

DRUGS (5)
  1. BUSULFAN (BUSULFAN) [Suspect]
     Indication: STEM CELL TRANSPLANT
     Dosage: 4 MG/KG; QD; PO
     Route: 048
  2. CYCLOPHOSPHAMIDE [Suspect]
     Indication: STEM CELL TRANSPLANT
     Dosage: 50 MG/KG; IV
     Route: 042
  3. CYCLOPHOSPHAMIDE [Concomitant]
  4. METHOTREXATE [Concomitant]
  5. CYCLOSPORINE [Concomitant]

REACTIONS (2)
  - GRAFT VERSUS HOST DISEASE [None]
  - PNEUMOCYSTIS JIROVECI PNEUMONIA [None]
